FAERS Safety Report 15151355 (Version 5)
Quarter: 2019Q4

REPORT INFORMATION
  Report Type: Report from Study
  Country: US (occurrence: US)
  Receive Date: 20180716
  Receipt Date: 20191126
  Transmission Date: 20200122
  Serious: Yes (Hospitalization)
  Sender: FDA-Public Use
  Company Number: US-ACTELION-A-US2016-146973

PATIENT
  Sex: Male
  Weight: 163.26 kg

DRUGS (3)
  1. ELIQUIS [Concomitant]
     Active Substance: APIXABAN
  2. OPSUMIT [Suspect]
     Active Substance: MACITENTAN
     Indication: PULMONARY ARTERIAL HYPERTENSION
     Dosage: 10 MG, QD
     Route: 048
     Dates: start: 20161014
  3. ADCIRCA [Concomitant]
     Active Substance: TADALAFIL

REACTIONS (8)
  - Dyspnoea [Unknown]
  - Product dose omission [Unknown]
  - Fatigue [Unknown]
  - Nausea [Unknown]
  - Hospitalisation [Unknown]
  - Unevaluable event [Unknown]
  - Oedema [Unknown]
  - Cellulitis [Unknown]
